FAERS Safety Report 4479068-2 (Version None)
Quarter: 2004Q4

REPORT INFORMATION
  Report Type: 
  Country: None (occurrence: None)
  Receive Date: 20041015
  Receipt Date: 20041001
  Transmission Date: 20050328
  Serious: Yes (Death)
  Sender: FDA-Public Use
  Company Number: 2004-0007567

PATIENT
  Age: 63 Year
  Sex: Male

DRUGS (2)
  1. VIREAD [Suspect]
     Dosage: 300 MG, ORAL
     Route: 048
  2. ZERIT [Suspect]
     Dosage: ORAL
     Route: 048

REACTIONS (1)
  - LACTIC ACIDOSIS [None]
